FAERS Safety Report 5487256-1 (Version None)
Quarter: 2007Q4

REPORT INFORMATION
  Report Type: 
  Country: None (occurrence: None)
  Receive Date: 20071016
  Receipt Date: 20071003
  Transmission Date: 20080405
  Serious: Yes (Hospitalization, Other)
  Sender: FDA-Public Use
  Company Number: HU-GENENTECH-248869

PATIENT
  Sex: Female
  Weight: 58 kg

DRUGS (3)
  1. RITUXAN [Suspect]
     Indication: MANTLE CELL LYMPHOMA
     Dosage: 600 MG, Q3W
     Route: 042
     Dates: start: 20070901
  2. CYCLOPHOSPHAMIDE [Suspect]
     Indication: MANTLE CELL LYMPHOMA
  3. EPIRUBICIN HYDROCHLORIDE [Suspect]
     Indication: MANTLE CELL LYMPHOMA

REACTIONS (3)
  - BONE MARROW DISORDER [None]
  - FEBRILE NEUTROPENIA [None]
  - PNEUMONIA [None]
